FAERS Safety Report 4431098-2 (Version None)
Quarter: 2004Q3

REPORT INFORMATION
  Report Type: 
  Country: None (occurrence: None)
  Receive Date: 20040823
  Receipt Date: 20040823
  Transmission Date: 20050211
  Serious: Yes (Other)
  Sender: FDA-Public Use
  Company Number: None

PATIENT
  Age: 68 Year
  Sex: Male
  Weight: 104.3273 kg

DRUGS (2)
  1. PROPARACAINE HCL [Suspect]
     Indication: CORNEAL DISORDER
     Dosage: 1 DROP RIGHT EYE
     Route: 047
     Dates: start: 20040821
  2. PROPARACAINE HCL [Suspect]
     Indication: FOREIGN BODY TRAUMA
     Dosage: 1 DROP RIGHT EYE
     Route: 047
     Dates: start: 20040821

REACTIONS (2)
  - MYDRIASIS [None]
  - VISION BLURRED [None]
